FAERS Safety Report 4479969-5 (Version None)
Quarter: 2004Q4

REPORT INFORMATION
  Report Type: 
  Country: None (occurrence: None)
  Receive Date: 20041018
  Receipt Date: 20041004
  Transmission Date: 20050328
  Serious: Yes (Hospitalization)
  Sender: FDA-Public Use
  Company Number: M2004-1515

PATIENT
  Age: 70 Year
  Sex: Male

DRUGS (3)
  1. PROPRANOLOL [Suspect]
     Indication: MIGRAINE
     Dosage: 10 MG BD, ORAL
     Route: 048
     Dates: start: 20040831, end: 20040831
  2. STILBOESTROL [Concomitant]
  3. SUMITRIPTAN [Concomitant]

REACTIONS (5)
  - CONDITION AGGRAVATED [None]
  - FEELING ABNORMAL [None]
  - HYPERHIDROSIS [None]
  - MIGRAINE [None]
  - NASOPHARYNGITIS [None]
